FAERS Safety Report 9775528 (Version 1)
Quarter: 2013Q4

REPORT INFORMATION
  Report Type: Spontaneous
  Country: US (occurrence: US)
  Receive Date: 20131220
  Receipt Date: 20131220
  Transmission Date: 20140711
  Serious: No
  Sender: FDA-Public Use
  Company Number: US-009507513-1312USA005809

PATIENT
  Sex: Female

DRUGS (1)
  1. JANUMET [Suspect]
     Indication: DIABETES MELLITUS
     Dosage: 50/100MG, BID (STRENGTH: 50/100MG)
     Route: 048
     Dates: start: 2008, end: 20131209

REACTIONS (3)
  - Neuralgia [Recovering/Resolving]
  - Scar [Recovering/Resolving]
  - Skin disorder [Recovering/Resolving]
